FAERS Safety Report 7601427-7 (Version None)
Quarter: 2011Q2

REPORT INFORMATION
  Report Type: 
  Country: None (occurrence: None)
  Receive Date: 20110629
  Receipt Date: 20110214
  Transmission Date: 20111010
  Serious: Yes (Hospitalization)
  Sender: FDA-Public Use
  Company Number: WAES 1102USA01753

PATIENT
  Age: 74 Year
  Sex: Female

DRUGS (5)
  1. HYZAAR [Suspect]
     Indication: HYPERTENSION
     Dosage: DAILY/PO
     Route: 048
     Dates: start: 20110201, end: 20110201
  2. CARVEDILOL [Concomitant]
  3. GLIMEPIRIDE [Concomitant]
  4. PLAVIX [Concomitant]
  5. SIMVASTATIN [Concomitant]

REACTIONS (2)
  - COUGH [None]
  - DYSPNOEA [None]
